FAERS Safety Report 12689279 (Version 3)
Quarter: 2016Q3

REPORT INFORMATION
  Report Type: Spontaneous
  Country: JP (occurrence: JP)
  Receive Date: 20160826
  Receipt Date: 20160915
  Transmission Date: 20161109
  Serious: Yes (Death, Other)
  Sender: FDA-Public Use
  Company Number: JP-009507513-1608JPN009249

PATIENT
  Age: 85 Year
  Sex: Male

DRUGS (4)
  1. PENTCILLIN [Concomitant]
     Active Substance: PIPERACILLIN SODIUM
     Indication: PNEUMONIA
     Dosage: 1 G, TID
     Route: 051
     Dates: start: 20160516, end: 20160525
  2. CANCIDAS [Suspect]
     Active Substance: CASPOFUNGIN ACETATE
     Indication: ASPERGILLUS INFECTION
     Dosage: 70 MG, QD
     Route: 041
     Dates: start: 20160524, end: 20160524
  3. CANCIDAS [Suspect]
     Active Substance: CASPOFUNGIN ACETATE
     Indication: ASPERGILLUS INFECTION
     Dosage: 50 MG, QD
     Route: 041
     Dates: start: 20160525, end: 20160525
  4. DEPAKENE [Concomitant]
     Active Substance: VALPROIC ACID
     Indication: DEMENTIA ALZHEIMER^S TYPE
     Dosage: 200 G, TID
     Route: 048
     Dates: start: 20160516, end: 20160525

REACTIONS (2)
  - Pneumonia [Fatal]
  - Respiratory failure [Fatal]

NARRATIVE: CASE EVENT DATE: 20160526
